FAERS Safety Report 10030976 (Version 1)
Quarter: 2014Q1

REPORT INFORMATION
  Report Type: Report from Study
  Country: US (occurrence: US)
  Receive Date: 20140324
  Receipt Date: 20140324
  Transmission Date: 20141002
  Serious: Yes (Other)
  Sender: FDA-Public Use
  Company Number: US-ROCHE-1365255

PATIENT
  Sex: Male
  Weight: 88.1 kg

DRUGS (3)
  1. NUTROPIN AQ [Suspect]
     Indication: HYPOPITUITARISM
     Dosage: 0.21 MG/KG/WEEK
     Route: 058
  2. GLUCOPHAGE [Concomitant]
     Indication: TYPE 2 DIABETES MELLITUS
     Dosage: 500 MG IN AM AND 1000 MG IN PM, 20 MG MG/2 ML
     Route: 048
  3. SYNTHROID [Concomitant]
     Indication: HYPOPITUITARISM
     Route: 048

REACTIONS (6)
  - Growth retardation [Unknown]
  - Vitamin D deficiency [Unknown]
  - Skin hypertrophy [Unknown]
  - Back pain [Unknown]
  - Fatigue [Unknown]
  - Acanthosis nigricans [Unknown]
